FAERS Safety Report 24195219 (Version 1)
Quarter: 2024Q3

REPORT INFORMATION
  Report Type: Spontaneous
  Country: AT (occurrence: AT)
  Receive Date: 20240809
  Receipt Date: 20240809
  Transmission Date: 20241017
  Serious: Yes (Other)
  Sender: ROCHE
  Company Number: AT-ROCHE-10000048122

PATIENT
  Age: 40 Year
  Sex: Female

DRUGS (1)
  1. ALECTINIB [Suspect]
     Active Substance: ALECTINIB
     Indication: Guillain-Barre syndrome
     Route: 065

REACTIONS (2)
  - Neuralgia [Unknown]
  - Off label use [Unknown]
